FAERS Safety Report 20765668 (Version 2)
Quarter: 2022Q2

REPORT INFORMATION
  Report Type: Report from Study
  Country: US (occurrence: US)
  Receive Date: 20220428
  Receipt Date: 20220502
  Transmission Date: 20220721
  Serious: Yes (Other)
  Sender: FDA-Public Use
  Company Number: US-JAZZ-2022-US-013985

PATIENT
  Sex: Female

DRUGS (17)
  1. XYWAV [Suspect]
     Active Substance: CALCIUM OXYBATE\MAGNESIUM OXYBATE\POTASSIUM OXYBATE\SODIUM OXYBATE
     Indication: Narcolepsy
     Dosage: UNK
     Route: 048
     Dates: start: 202203
  2. XYWAV [Suspect]
     Active Substance: CALCIUM OXYBATE\MAGNESIUM OXYBATE\POTASSIUM OXYBATE\SODIUM OXYBATE
     Indication: Cataplexy
  3. XYWAV [Suspect]
     Active Substance: CALCIUM OXYBATE\MAGNESIUM OXYBATE\POTASSIUM OXYBATE\SODIUM OXYBATE
     Indication: Somnolence
  4. LYRICA [Concomitant]
     Active Substance: PREGABALIN
     Dosage: 0000
     Dates: start: 20190315
  5. PYRIDOSTIGMINE BROMIDE [Concomitant]
     Active Substance: PYRIDOSTIGMINE BROMIDE
     Dosage: 0000
     Dates: start: 20210901
  6. IMURAN [Concomitant]
     Active Substance: AZATHIOPRINE
     Dosage: 0000
     Dates: start: 20200315
  7. PLAQUENIL [Concomitant]
     Active Substance: HYDROXYCHLOROQUINE SULFATE
     Dosage: 0000
     Dates: start: 20170101
  8. PREDNISONE [Concomitant]
     Active Substance: PREDNISONE
     Dosage: 0000
     Dates: start: 20180101
  9. NORTHERA [Concomitant]
     Active Substance: DROXIDOPA
     Dosage: 0000
     Dates: start: 20210315
  10. XOPENEX HFA [Concomitant]
     Active Substance: LEVALBUTEROL TARTRATE
     Dosage: 0000
     Dates: start: 20170101
  11. TRULANCE [Concomitant]
     Active Substance: PLECANATIDE
     Dosage: 0000
     Dates: start: 20220101
  12. MOTEGRITY [Concomitant]
     Active Substance: PRUCALOPRIDE SUCCINATE
     Dosage: 0000
     Dates: start: 20200101
  13. ZYRTEC [Concomitant]
     Active Substance: CETIRIZINE HYDROCHLORIDE
     Dosage: 0000
     Dates: start: 20120101
  14. MAGNESIUM [Concomitant]
     Active Substance: MAGNESIUM
     Dosage: 0000
     Dates: start: 20200101
  15. VITAMIN D3 [Concomitant]
     Active Substance: CHOLECALCIFEROL
     Dosage: 0000
     Dates: start: 20200101
  16. NORLYDA [Concomitant]
     Active Substance: NORETHINDRONE
     Dosage: 0000
     Dates: start: 20200101
  17. TIZANIDINE HYDROCHLORIDE [Concomitant]
     Active Substance: TIZANIDINE HYDROCHLORIDE
     Dosage: 0000
     Dates: start: 20210701

REACTIONS (3)
  - Impaired gastric emptying [Unknown]
  - Nausea [Unknown]
  - Product dose omission issue [Unknown]
